FAERS Safety Report 25916200 (Version 3)
Quarter: 2025Q4

REPORT INFORMATION
  Report Type: Spontaneous
  Country: JP (occurrence: JP)
  Receive Date: 20251014
  Receipt Date: 20251110
  Transmission Date: 20260117
  Serious: Yes (Hospitalization, Other)
  Sender: BAXTER
  Company Number: JP-BAXTER-2025BAX022418

PATIENT
  Age: 52 Year
  Sex: Female

DRUGS (2)
  1. DOXIL [Suspect]
     Active Substance: DOXORUBICIN HYDROCHLORIDE
     Indication: Ovarian cancer
     Dosage: 20 MG
     Route: 065
  2. BEVACIZUMAB [Suspect]
     Active Substance: BEVACIZUMAB
     Indication: Ovarian cancer
     Route: 065

REACTIONS (5)
  - Thrombotic microangiopathy [Unknown]
  - Protein urine present [Unknown]
  - Renal impairment [Unknown]
  - Disease progression [Unknown]
  - Biopsy kidney abnormal [Unknown]
